FAERS Safety Report 7464998-X (Version None)
Quarter: 2011Q2

REPORT INFORMATION
  Report Type: 
  Country: None (occurrence: None)
  Receive Date: 20110509
  Receipt Date: 20110426
  Transmission Date: 20111010
  Serious: Yes (Hospitalization, Other)
  Sender: FDA-Public Use
  Company Number: US-JNJFOC-20110312175

PATIENT
  Sex: Female
  Weight: 58.97 kg

DRUGS (7)
  1. METOPROLOL [Concomitant]
     Indication: HYPERTENSION
     Route: 048
  2. FENTANYL [Suspect]
     Indication: PRODUCT USED FOR UNKNOWN INDICATION
  3. FENTANYL [Suspect]
     Route: 062
  4. NORVASC [Concomitant]
     Indication: HYPERTENSION
     Route: 048
  5. FENTANYL [Suspect]
     Indication: PAIN
     Route: 062
  6. FENTANYL-100 [Suspect]
     Indication: PAIN
     Route: 062
  7. FENTANYL-100 [Suspect]
     Indication: PRODUCT USED FOR UNKNOWN INDICATION
     Route: 062

REACTIONS (7)
  - DERMATITIS CONTACT [None]
  - PAIN IN EXTREMITY [None]
  - RASH ERYTHEMATOUS [None]
  - SWELLING [None]
  - PRODUCT QUALITY ISSUE [None]
  - HYPERTENSION [None]
  - PARAESTHESIA [None]
